FAERS Safety Report 5725894-9 (Version None)
Quarter: 2008Q2

REPORT INFORMATION
  Report Type: 
  Country: None (occurrence: None)
  Receive Date: 20080502
  Receipt Date: 20080425
  Transmission Date: 20081010
  Serious: Yes (Other)
  Sender: FDA-Public Use
  Company Number: IT-RANBAXY-2008RR-14743

PATIENT

DRUGS (1)
  1. ACETAMINOPHEN [Suspect]

REACTIONS (1)
  - OLIGOHYDRAMNIOS [None]
